FAERS Safety Report 15132320 (Version 1)
Quarter: 2020Q3

REPORT INFORMATION
  Report Type: Report from Study
  Country: IT (occurrence: IT)
  Receive Date: 20180711
  Receipt Date: 20180711
  Transmission Date: 20201105
  Serious: Yes (Hospitalization)
  Sender: FDA-Public Use
  Company Number: IT-ASTRAZENECA-2018SE75035

PATIENT
  Age: 59 Year
  Sex: Female
  Weight: 59 kg

DRUGS (2)
  1. OLAPARIB. [Suspect]
     Active Substance: OLAPARIB
     Indication: PERITONEAL CANCER INDEX
     Route: 048
     Dates: start: 20180222, end: 20180508
  2. CEDIRANIB. [Suspect]
     Active Substance: CEDIRANIB
     Indication: PERITONEAL CANCER INDEX
     Route: 048
     Dates: start: 20180222, end: 20180508

REACTIONS (1)
  - Pneumonitis [Recovered/Resolved with Sequelae]

NARRATIVE: CASE EVENT DATE: 20180517
